FAERS Safety Report 13899948 (Version 1)
Quarter: 2017Q3

REPORT INFORMATION
  Report Type: Spontaneous
  Country: AT (occurrence: AT)
  Receive Date: 20170824
  Receipt Date: 20170824
  Transmission Date: 20171127
  Serious: Yes (Hospitalization)
  Sender: FDA-Public Use
  Company Number: AT-ABBVIE-17K-009-2081849-00

PATIENT
  Age: 80 Year
  Sex: Female

DRUGS (2)
  1. METHOTREXATE. [Concomitant]
     Active Substance: METHOTREXATE
     Indication: RHEUMATOID ARTHRITIS
     Dosage: BETWEEN 15 MG AND 25 MG PER WEEK
     Route: 048
     Dates: start: 200008, end: 2017
  2. HUMIRA [Suspect]
     Active Substance: ADALIMUMAB
     Indication: PRODUCT USED FOR UNKNOWN INDICATION
     Route: 058
     Dates: start: 200709, end: 201705

REACTIONS (2)
  - Myocarditis [Recovered/Resolved]
  - Polymyositis [Recovered/Resolved]

NARRATIVE: CASE EVENT DATE: 20160615
